FAERS Safety Report 9656335 (Version 1)
Quarter: 2013Q4

REPORT INFORMATION
  Report Type: Spontaneous
  Country: US (occurrence: None)
  Receive Date: 20131029
  Receipt Date: 20131029
  Transmission Date: 20140711
  Serious: No
  Sender: FDA-Public Use
  Company Number: None

PATIENT
  Age: 59 Year
  Sex: Female
  Weight: 74.84 kg

DRUGS (1)
  1. CITALOPRAM [Suspect]
     Dosage: 1 TABLET, QD, ORAL
     Route: 048

REACTIONS (3)
  - Wrong drug administered [None]
  - Drug dispensing error [None]
  - Feeling abnormal [None]
